FAERS Safety Report 19686914 (Version 1)
Quarter: 2021Q3

REPORT INFORMATION
  Report Type: Spontaneous
  Country: IS (occurrence: IS)
  Receive Date: 20210811
  Receipt Date: 20210811
  Transmission Date: 20211014
  Serious: Yes (Disabling, Other)
  Sender: FDA-Public Use
  Company Number: IS-MYLANLABS-2021M1049195

PATIENT
  Age: 11 Year
  Sex: Male
  Weight: 31 kg

DRUGS (8)
  1. OXYBUTYNIN MYLAN 5 MG T?FLUR [Suspect]
     Active Substance: OXYBUTYNIN CHLORIDE
     Indication: SALIVARY HYPERSECRETION
     Dosage: 5 MG PER DAY
     Dates: start: 20130101, end: 20210108
  2. INOVELON [Concomitant]
     Active Substance: RUFINAMIDE
     Dosage: 1600 MILLIGRAM
  3. OXYBUTYNIN AL [Suspect]
     Active Substance: OXYBUTYNIN CHLORIDE
     Indication: SALIVARY HYPERSECRETION
     Dosage: 5 MILLIGRAM, QD
     Dates: start: 20130101, end: 20210108
  4. LAMICTAL [Concomitant]
     Active Substance: LAMOTRIGINE
     Dosage: 250 MILLIGRAM
  5. MOVICOL [Concomitant]
     Active Substance: POLYETHYLENE GLYCOL 3350\POTASSIUM CHLORIDE\SODIUM BICARBONATE\SODIUM CHLORIDE
     Dosage: 20 MILLIGRAM
  6. NEXIUM [Concomitant]
     Active Substance: ESOMEPRAZOLE MAGNESIUM
     Dosage: 20 MILLIGRAM
  7. FRISIUM [Concomitant]
     Active Substance: CLOBAZAM
     Dosage: 40 MILLIGRAM
  8. AMITRIPTYLINE [Concomitant]
     Active Substance: AMITRIPTYLINE
     Dosage: 20 MILLIGRAM

REACTIONS (1)
  - Epilepsy [Recovering/Resolving]
